FAERS Safety Report 10536067 (Version 1)
Quarter: 2014Q4

REPORT INFORMATION
  Report Type: Spontaneous
  Country: US (occurrence: US)
  Receive Date: 20141022
  Receipt Date: 20141022
  Transmission Date: 20150529
  Serious: Yes (Death)
  Sender: FDA-Public Use
  Company Number: US-RECKITT BENCKISER PHARMACEUTICAL, INC-RB-62671-2014

PATIENT

DRUGS (4)
  1. BUPRENORPHINE/NALOXONE [Suspect]
     Active Substance: BUPRENORPHINE\NALOXONE
     Indication: DRUG WITHDRAWAL SYNDROME
     Dosage: UNKNOWN DOSING DETAILS; INGESTED VIA UNSPECIFIED ROUTE
     Route: 065
  2. PROPOFOL. [Suspect]
     Active Substance: PROPOFOL
     Indication: DRUG WITHDRAWAL SYNDROME
     Dosage: UNKNOWN DOSING DETAILS; INGESTED VIA UNSPECIFIED ROUTE
     Route: 065
  3. NALOXONE [Suspect]
     Active Substance: NALOXONE
     Indication: DRUG WITHDRAWAL SYNDROME
     Dosage: UNKNOWN DOSING DETAILS; INGESTED VIA UNSPECIFIED ROUTE
     Route: 065
  4. CLONIDINE. [Suspect]
     Active Substance: CLONIDINE
     Indication: DRUG WITHDRAWAL SYNDROME
     Dosage: UNKNOWN DOSING DETAILS; INGESTED VIA UNSPECIFIED ROUTE
     Route: 065

REACTIONS (1)
  - Toxicity to various agents [Fatal]
